FAERS Safety Report 8069040-8 (Version None)
Quarter: 2012Q1

REPORT INFORMATION
  Report Type: 
  Country: None (occurrence: None)
  Receive Date: 20120118
  Receipt Date: 20120109
  Transmission Date: 20120608
  Serious: Yes (Death)
  Sender: FDA-Public Use
  Company Number: JPI-P-014816

PATIENT
  Age: 84 Year
  Sex: Female

DRUGS (1)
  1. XYREM [Suspect]
     Indication: PRODUCT USED FOR UNKNOWN INDICATION
     Dosage: 9 MG (4.5 GM, 2 IN 1 D),ORAL
     Route: 048
     Dates: start: 20050610, end: 20050101

REACTIONS (4)
  - DISEASE PROGRESSION [None]
  - PNEUMONIA [None]
  - RESPIRATORY FAILURE [None]
  - DEMENTIA ALZHEIMER'S TYPE [None]
